FAERS Safety Report 4268618-7 (Version None)
Quarter: 2004Q1

REPORT INFORMATION
  Report Type: 
  Country: None (occurrence: None)
  Receive Date: 20040108
  Receipt Date: 20040102
  Transmission Date: 20041129
  Serious: Yes (Hospitalization)
  Sender: FDA-Public Use
  Company Number: 2004192347AU

PATIENT
  Age: 33 Year
  Sex: Female

DRUGS (8)
  1. IDARUBICIN HCL [Suspect]
     Indication: ACUTE MYELOID LEUKAEMIA
     Dosage: 14 MG, QD, IV
     Route: 042
     Dates: start: 20031218, end: 20031219
  2. CYTARABINE INJ. ICYTARABINE)SOLUTION, STERIL [Suspect]
     Indication: ACUTE MYELOID LEUKAEMIA
     Dosage: 150 MG, , QD, DAYS 1-5 , IV
     Route: 042
     Dates: start: 20031218, end: 20031222
  3. ETOPOSIDE [Suspect]
     Indication: ACUTE MYELOID LEUKAEMIA
     Dosage: 110 MG , QD, 1-5 DAY, IV
     Route: 042
     Dates: start: 20031218, end: 20031222
  4. NEUPOGEN [Suspect]
     Indication: ACUTE MYELOID LEUKAEMIA
     Dosage: 300 UG QD, SUBCUTANEOUS
     Route: 058
     Dates: start: 20031223, end: 20031229
  5. DIFLUCAN [Concomitant]
  6. NILSTAT [Concomitant]
  7. SODIUM BICARBONATE IN PLASTIC CONTAINER [Concomitant]
  8. PRIMOLUT TABLETS [Concomitant]

REACTIONS (2)
  - FEBRILE NEUTROPENIA [None]
  - HAEMORRHOIDS [None]
